FAERS Safety Report 8644165 (Version 7)
Quarter: 2012Q4

REPORT INFORMATION
  Report Type: 
  Country: US (occurrence: US)
  Receive Date: 20120629
  Receipt Date: 20121115
  Transmission Date: 20130627
  Serious: Yes (Hospitalization, Other)
  Sender: FDA-Public Use
  Company Number: US-PFIZER INC-2012155170

PATIENT
  Age: 89 Year
  Sex: Female
  Weight: 67 kg

DRUGS (16)
  1. LEVOXYL [Suspect]
     Indication: THYROID DISORDER
     Dosage: 50 ug, 1x/day
     Dates: start: 19920901
  2. LEVOXYL [Suspect]
     Indication: HYPOTHYROIDISM
     Dosage: 75 ug, 1x/day
  3. LEVOXYL [Suspect]
     Dosage: 100 ug, 1x/day
  4. LEVOXYL [Suspect]
     Dosage: 125 ug, 1x/day
  5. LEVOXYL [Suspect]
     Dosage: 150 ug, 1x/day
  6. LEVOXYL [Suspect]
     Dosage: 175 ug, 1x/day
  7. LEVOXYL [Suspect]
     Dosage: 200 ug, 1x/day
     Dates: start: 20120701
  8. TOVIAZ [Suspect]
     Indication: BLADDER DISORDER
     Dosage: UNK
  9. COUMADIN [Concomitant]
     Indication: VISUAL IMPAIRMENT
     Dosage: 250 mg daily on Saturdays and Sundays and 120 mg daily on the rest of days
  10. LISINOPRIL [Concomitant]
     Indication: BLOOD PRESSURE ABNORMAL
     Dosage: 20 mg, 2x/day
  11. ATENOLOL [Concomitant]
     Indication: BLOOD PRESSURE ABNORMAL
     Dosage: UNK
  12. ZOCOR [Concomitant]
     Dosage: 20 mg, UNK
  13. TRICOR [Concomitant]
     Dosage: 145 mg
  14. SYNTHROID [Concomitant]
     Dosage: daily
  15. LOSARTAN [Concomitant]
     Indication: BLOOD PRESSURE HIGH
     Dosage: 2x/day
  16. INSULIN [Concomitant]
     Dosage: 5x/day

REACTIONS (16)
  - Ocular vascular disorder [Not Recovered/Not Resolved]
  - Carpal tunnel syndrome [Unknown]
  - Cataract [Unknown]
  - Visual impairment [Not Recovered/Not Resolved]
  - Paralysis [Unknown]
  - Deafness [Unknown]
  - Arthropathy [Unknown]
  - Pain in extremity [Unknown]
  - Insomnia [Unknown]
  - Pollakiuria [Unknown]
  - Drug ineffective [Unknown]
  - Arthralgia [Unknown]
  - Back pain [Unknown]
  - Fall [Unknown]
  - Gait disturbance [Unknown]
  - Joint range of motion decreased [Unknown]
